FAERS Safety Report 10744591 (Version 1)
Quarter: 2015Q1

REPORT INFORMATION
  Report Type: Spontaneous
  Country: US (occurrence: None)
  Receive Date: 20150126
  Receipt Date: 20150126
  Transmission Date: 20150721
  Serious: Yes (Life-Threatening)
  Sender: FDA-Public Use
  Company Number: None

PATIENT
  Age: 25 Year
  Sex: Male
  Weight: 88.45 kg

DRUGS (1)
  1. AZITHROMYCIN 250 MG GREENSTONE BRAND [Suspect]
     Active Substance: AZITHROMYCIN DIHYDRATE
     Indication: SINUSITIS
     Dosage: 500 MG DAY ONE,  250 QD  ONCE DAILY TAKEN BY MOUTH
     Route: 048
     Dates: start: 20150114, end: 20150118

REACTIONS (2)
  - Night sweats [None]
  - Palpitations [None]

NARRATIVE: CASE EVENT DATE: 20150116
